FAERS Safety Report 15057701 (Version 3)
Quarter: 2018Q4

REPORT INFORMATION
  Report Type: Report from Study
  Country: None (occurrence: US)
  Receive Date: 20180625
  Receipt Date: 20181029
  Transmission Date: 20190204
  Serious: Yes (Other)
  Sender: FDA-Public Use
  Company Number: US-ABBVIE-18K-163-2397833-00

PATIENT
  Age: 63 Year
  Sex: Female
  Weight: 54.48 kg

DRUGS (1)
  1. HUMIRA [Suspect]
     Active Substance: ADALIMUMAB
     Indication: CROHN^S DISEASE
     Route: 058

REACTIONS (6)
  - Blood magnesium decreased [Unknown]
  - Post procedural infection [Unknown]
  - Intestinal obstruction [Unknown]
  - Crohn^s disease [Unknown]
  - Blood potassium decreased [Unknown]
  - Volvulus of small bowel [Unknown]

NARRATIVE: CASE EVENT DATE: 2018
